FAERS Safety Report 7875028-X (Version None)
Quarter: 2011Q4

REPORT INFORMATION
  Report Type: 
  Country: None (occurrence: None)
  Receive Date: 20111003
  Receipt Date: 20110126
  Transmission Date: 20120403
  Serious: Yes (Hospitalization, Other)
  Sender: FDA-Public Use
  Company Number: 264728USA

PATIENT
  Age: 74 Year
  Sex: Female

DRUGS (2)
  1. VENLAFAXINE HYDROCHLORIDE [Suspect]
     Indication: DEPRESSION
  2. VENLAFAXINE [Suspect]
     Indication: DEPRESSION

REACTIONS (9)
  - HEAD DISCOMFORT [None]
  - DISTURBANCE IN ATTENTION [None]
  - HYPERHIDROSIS [None]
  - SURGERY [None]
  - DYSKINESIA [None]
  - THINKING ABNORMAL [None]
  - NAUSEA [None]
  - SUICIDAL IDEATION [None]
  - DRUG INTOLERANCE [None]
